FAERS Safety Report 7030504-7 (Version None)
Quarter: 2010Q4

REPORT INFORMATION
  Report Type: 
  Country: None (occurrence: None)
  Receive Date: 20101006
  Receipt Date: 20100929
  Transmission Date: 20110411
  Serious: Yes (Other)
  Sender: FDA-Public Use
  Company Number: US-ROCHE-696390

PATIENT
  Sex: Male

DRUGS (2)
  1. PEGASYS [Suspect]
     Indication: HEPATITIS C
     Dosage: FORM: PRE-FILLED SYRINGE; WEEK 27
     Route: 065
     Dates: start: 20100309, end: 20100907
  2. RIBAVARIN [Suspect]
     Indication: HEPATITIS C
     Dosage: FORM: PILLS
     Route: 065
     Dates: start: 20100309, end: 20100907

REACTIONS (12)
  - AMNESIA [None]
  - ANGER [None]
  - ANXIETY [None]
  - CHROMATURIA [None]
  - DIZZINESS [None]
  - FALL [None]
  - FATIGUE [None]
  - HYPERTENSION [None]
  - INSOMNIA [None]
  - LOSS OF CONSCIOUSNESS [None]
  - MOOD SWINGS [None]
  - NO THERAPEUTIC RESPONSE [None]
